FAERS Safety Report 16645747 (Version 1)
Quarter: 2019Q3

REPORT INFORMATION
  Report Type: Report from Study
  Country: NL (occurrence: NL)
  Receive Date: 20190730
  Receipt Date: 20190730
  Transmission Date: 20191004
  Serious: Yes (Hospitalization)
  Sender: FDA-Public Use
  Company Number: NL-ROCHE-2360687

PATIENT
  Age: 47 Year
  Sex: Female

DRUGS (8)
  1. PERTUZUMAB. [Suspect]
     Active Substance: PERTUZUMAB
     Dosage: MAINTAINING DOSE, ON DAY 1 OF EACH 21 DAYS CYCLE?DATE OF MOST RECENT DOSE OF PERTUZUMAB PRIOR TO ONS
     Route: 042
  2. BUTYLSCOPOLAMINE [Concomitant]
     Active Substance: BUTYLSCOPOLAMINE
     Route: 065
     Dates: start: 20190620
  3. TRASTUZUMAB. [Suspect]
     Active Substance: TRASTUZUMAB
     Indication: HER-2 POSITIVE BREAST CANCER
     Dosage: LOADING DOSE
     Route: 041
     Dates: start: 20190509, end: 20190509
  4. TRASTUZUMAB. [Suspect]
     Active Substance: TRASTUZUMAB
     Dosage: MAINTAINING DOSE, ON DAY 1 OF EACH 21 DAYS CYCLE?DATE OF MOST RECENT DOSE OF TRASTUZUMAB PRIOR TO ON
     Route: 041
  5. PERTUZUMAB. [Suspect]
     Active Substance: PERTUZUMAB
     Indication: HER-2 POSITIVE BREAST CANCER
     Dosage: LOADING DOSE
     Route: 042
     Dates: start: 20190509, end: 20190509
  6. PACLITAXEL. [Suspect]
     Active Substance: PACLITAXEL
     Indication: HER-2 POSITIVE BREAST CANCER
     Dosage: ON DAY 1 AND DAY 8 OF EACH 21 DAYS CYCLE.?DATE OF MOST RECENT DOSE OF PACLITAXEL PRIOR TO ONSET OF S
     Route: 042
     Dates: start: 20190509
  7. CARBOPLATIN. [Suspect]
     Active Substance: CARBOPLATIN
     Indication: HER-2 POSITIVE BREAST CANCER
     Dosage: ON DAY 1 AND DAY 8 OF EACH 21 DAYS CYCLE?DATE OF MOST RECENT DOSE OF CARBOPLATIN PRIOR TO ONSET OF S
     Route: 042
     Dates: start: 20190509
  8. METOCLOPRAMIDE. [Concomitant]
     Active Substance: METOCLOPRAMIDE
     Route: 065
     Dates: start: 20190415

REACTIONS (1)
  - Syncope [Not Recovered/Not Resolved]

NARRATIVE: CASE EVENT DATE: 20190722
